FAERS Safety Report 9145944 (Version 1)
Quarter: 2013Q1

REPORT INFORMATION
  Report Type: Spontaneous
  Country: GB (occurrence: GB)
  Receive Date: 20130307
  Receipt Date: 20130307
  Transmission Date: 20140127
  Serious: Yes (Other)
  Sender: FDA-Public Use
  Company Number: GB-COVIDIEN/TYCO HEALTHCARE/MALLINCKRODT-T201301067

PATIENT
  Age: 52 Year
  Sex: Male
  Weight: 153 kg

DRUGS (5)
  1. PENNSAID TOPICAL [Suspect]
     Indication: PRODUCT USED FOR UNKNOWN INDICATION
     Dosage: UNK
     Route: 065
  2. HUMIRA [Suspect]
     Indication: PSORIASIS
     Dosage: 2.8571 MG (40 MG, 1 IN 2 WK)
     Route: 058
     Dates: start: 20130216
  3. HUMIRA [Suspect]
     Indication: ARTHRITIS
     Dosage: 5.7143 MG (80 MG, 1 IN 2 WK)
     Route: 058
     Dates: start: 20121024
  4. FLUOXETINE [Concomitant]
     Indication: DEPRESSION
     Dosage: 20 MG, (20 MG, 1 IN 1D)
     Route: 048
     Dates: start: 20111012
  5. METHOTREXATE [Concomitant]
     Indication: PSORIASIS
     Dosage: 1.4286  MG (10 MG, 1 IN 1 WK)

REACTIONS (8)
  - Cyanosis [Unknown]
  - Nephrolithiasis [Unknown]
  - Blood pressure decreased [Unknown]
  - Renal pain [Recovered/Resolved]
  - Asthenia [Unknown]
  - Dyspnoea [Recovered/Resolved]
  - Hypersensitivity [Unknown]
  - Pruritus generalised [Unknown]
